FAERS Safety Report 6994824-4 (Version None)
Quarter: 2010Q3

REPORT INFORMATION
  Report Type: 
  Country: None (occurrence: None)
  Receive Date: 20100917
  Receipt Date: 20090811
  Transmission Date: 20110219
  Serious: Yes (Other)
  Sender: FDA-Public Use
  Company Number: HQWYE270213AUG04

PATIENT
  Sex: Female

DRUGS (6)
  1. PREMPRO [Suspect]
     Indication: HORMONE REPLACEMENT THERAPY
  2. PROMETRIUM [Suspect]
  3. MEDROXYPROGESTERONE ACETATE [Suspect]
  4. FEMHRT [Suspect]
  5. PREMARIN [Suspect]
  6. PROVERA [Suspect]

REACTIONS (2)
  - DEEP VEIN THROMBOSIS [None]
  - RETINAL VEIN THROMBOSIS [None]
